FAERS Safety Report 9492124 (Version 2)
Quarter: 2013Q3

REPORT INFORMATION
  Report Type: Report from Study
  Country: JP (occurrence: JP)
  Receive Date: 20130830
  Receipt Date: 20130913
  Transmission Date: 20140515
  Serious: Yes (Hospitalization)
  Sender: FDA-Public Use
  Company Number: JP-OTSUKA-JP-2013-13361

PATIENT
  Age: 83 Year
  Sex: Male
  Weight: 62.9 kg

DRUGS (37)
  1. SAMSCA [Suspect]
     Indication: FLUID RETENTION
     Dosage: 7.5 MG MILLIGRAM(S), QAM
     Route: 048
     Dates: start: 20130419, end: 20130508
  2. LASIX [Concomitant]
     Indication: CARDIAC FAILURE
     Dosage: 40 MG MILLIGRAM(S), DAILY DOSE
     Route: 042
     Dates: end: 20130413
  3. HANP [Concomitant]
     Indication: CARDIAC FAILURE
     Dosage: 2000 MCG, DAILY DOSE
     Route: 042
     Dates: end: 20130415
  4. FLUITRAN [Concomitant]
     Indication: CARDIAC FAILURE
     Dosage: 0.5 MG MILLIGRAM(S), DAILY DOSE
     Route: 048
     Dates: end: 20130507
  5. LUPRAC [Concomitant]
     Indication: CARDIAC FAILURE
     Dosage: 4 MG MILLIGRAM(S), DAILY DOSE
     Route: 048
     Dates: end: 20130507
  6. ADALAT CR [Concomitant]
     Dosage: 20 MG MILLIGRAM(S), DAILY DOSE
     Route: 048
  7. BAYASPIRIN [Concomitant]
     Dosage: 100 MG MILLIGRAM(S), DAILY DOSE
     Route: 048
  8. ZYLORIC [Concomitant]
     Dosage: 100 MG MILLIGRAM(S), DAILY DOSE
     Route: 048
  9. LIPOVAS [Concomitant]
     Dosage: 5 MG MILLIGRAM(S), DAILY DOSE
     Route: 048
  10. ALDOMET [Concomitant]
     Dosage: 500 MG MILLIGRAM(S), DAILY DOSE
     Route: 048
  11. MAGMITT [Concomitant]
     Dosage: 1.5 G GRAM(S), DAILY DOSE
     Route: 048
  12. ASPARA POTASSIUM [Concomitant]
     Indication: PROPHYLAXIS
     Dosage: 1800 MG MILLIGRAM(S), DAILY DOSE
     Route: 048
  13. SENNOSIDE [Concomitant]
     Dosage: 12 MG MILLIGRAM(S), DAILY DOSE
     Route: 048
  14. LENDORMIN [Concomitant]
     Dosage: 0.25 MG MILLIGRAM(S), DAILY DOSE
     Route: 048
  15. MAINTATE [Concomitant]
     Indication: CARDIAC FAILURE
     Dosage: 2.5 MG MILLIGRAM(S), DAILY DOSE
     Route: 048
  16. PLAVIX [Concomitant]
     Dosage: 75 MG MILLIGRAM(S), DAILY DOSE
     Route: 048
  17. TAKEPRON [Concomitant]
     Indication: PROPHYLAXIS
     Dosage: 30 MG MILLIGRAM(S), DAILY DOSE
     Route: 048
  18. FERROMIA [Concomitant]
     Dosage: 100 MG MILLIGRAM(S), DAILY DOSE
     Route: 048
  19. VOLTAREN [Concomitant]
     Indication: PAIN
     Dosage: 50 MG MILLIGRAM(S), PRN
     Route: 048
  20. MILTAX [Concomitant]
     Dosage: 30 MG MILLIGRAM(S), DAILY DOSE
     Route: 061
  21. HIRUDOID [Concomitant]
     Indication: PRURITUS
     Dosage: 5 G GRAM(S), PRN
     Route: 061
  22. MOHRUS [Concomitant]
     Dosage: 40 MG MILLIGRAM(S), DAILY DOSE
     Route: 061
  23. LOXONIN [Concomitant]
     Dosage: 100 MG MILLIGRAM(S), DAILY DOSE
     Route: 061
  24. CLARITIN REDITABS [Concomitant]
     Indication: PRURITUS
     Dosage: 10 MG MILLIGRAM(S), PRN
     Route: 048
  25. MUCODYNE [Concomitant]
     Dosage: 1500 MG MILLIGRAM(S), DAILY DOSE
     Route: 048
     Dates: start: 20130402
  26. MUCOSOLVAN [Concomitant]
     Dosage: 45 MG MILLIGRAM(S), DAILY DOSE
     Route: 048
     Dates: start: 20130402
  27. TANATRIL [Concomitant]
     Dosage: 5 MG MILLIGRAM(S), DAILY DOSE
     Route: 048
     Dates: start: 20130402
  28. ZOSYN [Concomitant]
     Dosage: 4.5 G GRAM(S), DAILY DOSE
     Route: 042
     Dates: start: 20130405, end: 20130412
  29. NESP [Concomitant]
     Indication: NEPHROGENIC ANAEMIA
     Dosage: 30 MCG, DAILY DOSE
     Route: 042
     Dates: start: 20130410, end: 20130410
  30. NESP [Concomitant]
     Dosage: 30 MCG, DAILY DOSE
     Route: 042
     Dates: start: 20130502, end: 20130502
  31. RED BLOOD CELLS, CONCENTRATED [Concomitant]
     Dosage: 2 IU, DAILY DOSE
     Route: 041
     Dates: start: 20130412, end: 20130412
  32. RED BLOOD CELLS, CONCENTRATED [Concomitant]
     Dosage: 2 IU, DAILY DOSE
     Route: 041
     Dates: start: 20130419, end: 20130419
  33. MEROPEN [Concomitant]
     Dosage: 1 G GRAM(S), DAILY DOSE
     Route: 041
     Dates: start: 20130412, end: 20130502
  34. CELECOX [Concomitant]
     Indication: PERIPHERAL ARTERIAL OCCLUSIVE DISEASE
     Dosage: 200 MG MILLIGRAM(S), DAILY DOSE
     Route: 048
     Dates: start: 20130422
  35. ULCERLMIN [Concomitant]
     Indication: PROPHYLAXIS
     Dosage: 3 G GRAM(S), DAILY DOSE
     Route: 048
     Dates: start: 20130422
  36. CELESTAMINE [Concomitant]
     Indication: PRURITUS
     Dosage: 2 DF DOSAGE FORM, DAILY DOSE
     Route: 048
     Dates: start: 20130507
  37. LOCOID [Concomitant]
     Indication: PRURITUS
     Dosage: 1 G GRAM(S), PRN
     Route: 061
     Dates: start: 20130507

REACTIONS (2)
  - Pancreatitis acute [Recovering/Resolving]
  - Dehydration [Recovered/Resolved]
